FAERS Safety Report 11177514 (Version 2)
Quarter: 2015Q4

REPORT INFORMATION
  Report Type: Spontaneous
  Country: GB (occurrence: GB)
  Receive Date: 20150610
  Receipt Date: 20151223
  Transmission Date: 20160304
  Serious: Yes (Other)
  Sender: FDA-Public Use
  Company Number: GB-WATSON-2015-11141

PATIENT
  Age: 17 Day
  Sex: Female
  Weight: .62 kg

DRUGS (9)
  1. NEOPROFEN [Suspect]
     Active Substance: IBUPROFEN LYSINE
     Indication: PATENT DUCTUS ARTERIOSUS
     Dosage: 5 MG/KG, UNKNOWN
     Route: 041
     Dates: start: 20150325
  2. FLUCONAZOLE. [Concomitant]
     Active Substance: FLUCONAZOLE
     Indication: INFECTION PROPHYLAXIS
     Dosage: 6 MG/KG, TID
     Route: 065
     Dates: start: 20150314, end: 20150405
  3. CEFOTAXIME [Suspect]
     Active Substance: CEFOTAXIME SODIUM
     Indication: SEPSIS NEONATAL
     Dosage: 50 MG/KG, TID
     Route: 065
     Dates: start: 20150320, end: 20150403
  4. VANCOMYCIN (UNKNOWN) [Suspect]
     Active Substance: VANCOMYCIN
     Indication: SEPSIS NEONATAL
     Dosage: 1 MG/KG, Q1H
     Route: 065
     Dates: start: 20150329, end: 20150408
  5. NEOPROFEN [Suspect]
     Active Substance: IBUPROFEN LYSINE
     Dosage: 10 MG/KG, UNKNOWN
     Route: 041
     Dates: end: 20150325
  6. MORPHINE [Concomitant]
     Active Substance: MORPHINE
     Indication: SEDATION
     Dosage: 30 MG/KG, Q1H
     Route: 065
     Dates: start: 20150314
  7. NEOPROFEN [Suspect]
     Active Substance: IBUPROFEN LYSINE
     Dosage: 10 MG/KG, UNKNOWN
     Route: 041
     Dates: end: 20150331
  8. NEOPROFEN [Suspect]
     Active Substance: IBUPROFEN LYSINE
     Dosage: 5 MG/KG, UNKNOWN
     Route: 041
     Dates: start: 20150331
  9. CAFFEINA [Concomitant]
     Indication: APNOEA
     Dosage: 10 MG/KG, DAILY
     Route: 065
     Dates: start: 20150314

REACTIONS (2)
  - Renal failure [Recovered/Resolved]
  - Hypotension [Recovered/Resolved]

NARRATIVE: CASE EVENT DATE: 201503
